FAERS Safety Report 8123836-2 (Version None)
Quarter: 2012Q1

REPORT INFORMATION
  Report Type: 
  Country: None (occurrence: None)
  Receive Date: 20120209
  Receipt Date: 20120201
  Transmission Date: 20120608
  Serious: Yes (Other)
  Sender: FDA-Public Use
  Company Number: AR-AMGEN-ARGSP2012007696

PATIENT
  Age: 62 Year
  Sex: Female

DRUGS (8)
  1. NAPROXEN [Concomitant]
     Dosage: UNK
     Route: 048
     Dates: end: 20111101
  2. SULFASALAZINE [Concomitant]
     Dosage: UNK
     Route: 048
     Dates: end: 20111101
  3. FOLIC ACID [Concomitant]
     Dosage: UNK
     Route: 048
     Dates: end: 20111101
  4. ATENOLOL [Concomitant]
     Dosage: UNK
     Route: 048
  5. ENBREL [Suspect]
     Indication: ANKYLOSING SPONDYLITIS
     Dosage: 25 MG, 2X/WEEK
     Route: 058
     Dates: start: 20110921, end: 20111101
  6. HYDROXYCHLOROQUINE SULFATE [Concomitant]
     Dosage: UNK
     Route: 048
     Dates: end: 20111101
  7. ATORVASTATIN [Concomitant]
     Dosage: UNK
     Route: 048
  8. ALPRAZOLAM [Concomitant]
     Dosage: UNK
     Route: 048

REACTIONS (3)
  - GASTRITIS EROSIVE [None]
  - REFLUX GASTRITIS [None]
  - HIATUS HERNIA [None]
